FAERS Safety Report 8265484-X (Version None)
Quarter: 2012Q2

REPORT INFORMATION
  Report Type: 
  Country: None (occurrence: None)
  Receive Date: 20120406
  Receipt Date: 20120404
  Transmission Date: 20120825
  Serious: Yes (Other)
  Sender: FDA-Public Use
  Company Number: CH-PFIZER INC-2012074295

PATIENT
  Age: 50 Year
  Sex: Male

DRUGS (11)
  1. TRAZODONE HCL [Concomitant]
     Indication: DEPRESSION
     Dosage: 100 MG, 1X/DAY (0-0-0-1)
     Route: 048
     Dates: start: 20070101
  2. ATORVASTATIN CALCIUM [Concomitant]
     Indication: HYPERCHOLESTEROLAEMIA
     Dosage: 40 MG, 1X/DAY (1-0-0)
     Route: 048
     Dates: start: 20060101
  3. VENLAFAXINE [Concomitant]
     Indication: DEPRESSION
     Dosage: 150 MG, 2X/DAY (1-1-0)
     Route: 048
     Dates: start: 20070101
  4. NEURONTIN [Concomitant]
     Indication: POST-TRAUMATIC EPILEPSY
     Dosage: 600 MG, 3X/DAY (1-1-1)
     Route: 048
     Dates: start: 20060101
  5. TRAZODONE HCL [Concomitant]
     Indication: SLEEP DISORDER
  6. ASPIRIN [Concomitant]
     Indication: PROPHYLAXIS
     Dosage: 100 MG, ONCE
     Route: 048
     Dates: start: 20050101
  7. VENLAFAXINE [Concomitant]
     Indication: POST-TRAUMATIC STRESS DISORDER
  8. CALCIMAGON-D3 [Concomitant]
     Indication: VITAMIN D DEFICIENCY
     Dosage: 1 DF, 2X/DAY (1-0-1)
     Route: 048
     Dates: start: 20110101
  9. MINIPRESS [Suspect]
     Indication: POST-TRAUMATIC STRESS DISORDER
     Dosage: 10 MG, 1X/DAY
     Route: 048
     Dates: start: 20111103
  10. LAMICTAL [Concomitant]
     Indication: POST-TRAUMATIC EPILEPSY
     Dosage: 100 MG, 2X/DAY (1-0-1)
     Route: 048
     Dates: start: 20070101
  11. VOLTAREN [Concomitant]
     Indication: NECK PAIN
     Dosage: 150 MG, 4X/DAY (1-1-1-1)
     Route: 048
     Dates: start: 20080101

REACTIONS (1)
  - HEARING IMPAIRED [None]
